FAERS Safety Report 4850002-6 (Version None)
Quarter: 2005Q4

REPORT INFORMATION
  Report Type: 
  Country: None (occurrence: None)
  Receive Date: 20051102
  Receipt Date: 20050822
  Transmission Date: 20060501
  Serious: No
  Sender: FDA-Public Use
  Company Number: 200510980BWH

PATIENT
  Sex: Male
  Weight: 77.1115 kg

DRUGS (8)
  1. LEVITRA [Suspect]
     Indication: ERECTILE DYSFUNCTION
     Dosage: 20 MG, QD, ORAL
     Route: 048
  2. GEMFIBROZIL [Concomitant]
  3. GLIPIZIDE [Concomitant]
  4. METOPROLOL [Concomitant]
  5. CENTRUM SILVER [Concomitant]
  6. ASCORBIC ACID [Concomitant]
  7. CALCIUM GLUCONATE [Concomitant]
  8. LACTASE [Concomitant]

REACTIONS (6)
  - HEADACHE [None]
  - MALAISE [None]
  - MYALGIA [None]
  - PAIN [None]
  - PAIN IN EXTREMITY [None]
  - RENAL PAIN [None]
